FAERS Safety Report 16179121 (Version 1)
Quarter: 2019Q2

REPORT INFORMATION
  Report Type: Spontaneous
  Country: US (occurrence: US)
  Receive Date: 20190307
  Receipt Date: 20190307
  Transmission Date: 20190711
  Serious: No
  Sender: FDA-Public Use
  Company Number: None

PATIENT
  Age: 76 Year
  Sex: Male

DRUGS (9)
  1. LEVAQUIN [Concomitant]
     Active Substance: LEVOFLOXACIN
  2. METFORMIN [Concomitant]
     Active Substance: METFORMIN HYDROCHLORIDE
  3. VERAPAMIL [Concomitant]
     Active Substance: VERAPAMIL HYDROCHLORIDE
  4. STELARA [Suspect]
     Active Substance: USTEKINUMAB
     Indication: PSORIATIC ARTHROPATHY
     Dosage: ?          OTHER FREQUENCY:Q 3 MONTHS ;?
     Route: 058
     Dates: start: 20180327
  5. METOPRO [Concomitant]
  6. FOLIC ACID. [Concomitant]
     Active Substance: FOLIC ACID
  7. LOVASTATIN. [Concomitant]
     Active Substance: LOVASTATIN
  8. MTX [Concomitant]
     Active Substance: METHOTREXATE SODIUM
  9. JANTOVEN [Concomitant]
     Active Substance: WARFARIN SODIUM

REACTIONS (2)
  - Influenza like illness [None]
  - Diarrhoea [None]
